FAERS Safety Report 11660839 (Version 1)
Quarter: 2015Q4

REPORT INFORMATION
  Report Type: Spontaneous
  Country: US (occurrence: US)
  Receive Date: 20151026
  Receipt Date: 20151026
  Transmission Date: 20160304
  Serious: No
  Sender: FDA-Public Use
  Company Number: US-MEDA-2011110131

PATIENT
  Age: 84 Year
  Sex: Female
  Weight: 66 kg

DRUGS (2)
  1. ASPIRIN. [Concomitant]
     Active Substance: ASPIRIN
     Indication: ATRIAL FIBRILLATION
     Route: 048
     Dates: start: 2008
  2. ASTEPRO [Suspect]
     Active Substance: AZELASTINE HYDROCHLORIDE
     Indication: RHINITIS ALLERGIC
     Dates: start: 20111117

REACTIONS (1)
  - Diplopia [Recovered/Resolved]

NARRATIVE: CASE EVENT DATE: 20111120
